FAERS Safety Report 5605371-6 (Version None)
Quarter: 2008Q1

REPORT INFORMATION
  Report Type: 
  Country: None (occurrence: None)
  Receive Date: 20080123
  Receipt Date: 20080110
  Transmission Date: 20080703
  Serious: Yes (Hospitalization)
  Sender: FDA-Public Use
  Company Number: 2008BI000011

PATIENT
  Age: 49 Year
  Sex: Female

DRUGS (4)
  1. TYSABRI [Suspect]
     Indication: MULTIPLE SCLEROSIS
     Dosage: 300 MG, QM; IV
     Route: 042
     Dates: start: 20070323
  2. AVONEX [Concomitant]
  3. XANAX [Concomitant]
  4. BACLOFEN [Concomitant]

REACTIONS (5)
  - BACTERIA URINE [None]
  - FEELING COLD [None]
  - NEPHROLITHIASIS [None]
  - TREMOR [None]
  - URINARY TRACT INFECTION [None]
